FAERS Safety Report 20772677 (Version 1)
Quarter: 2022Q2

REPORT INFORMATION
  Report Type: Other
  Country: US (occurrence: US)
  Receive Date: 20220502
  Receipt Date: 20220502
  Transmission Date: 20220720
  Serious: Yes (Other)
  Sender: FDA-Public Use
  Company Number: US-BoehringerIngelheim-2022-BI-166897

PATIENT
  Age: 12 Year
  Sex: Male
  Weight: 87.9 kg

DRUGS (5)
  1. ALTEPLASE [Suspect]
     Active Substance: ALTEPLASE
     Indication: Pulmonary artery thrombosis
     Dosage: ROUTE: SYSTEMIC THROMBOLYSIS
     Route: 065
  2. ALTEPLASE [Suspect]
     Active Substance: ALTEPLASE
     Dosage: CONTINUOUS RTPA INFUSION AT OUR INSTITUTIONAL MAXIMUM?DOSE OF 1 MG/H
     Route: 065
  3. ALTEPLASE [Suspect]
     Active Substance: ALTEPLASE
     Dosage: A DOSE OF 0.25 MG/H OF RTPA WITH 15 ML/H OF FRESH FROZEN PLASMA (FFP) WAS INFUSED THROUGH EACH CATHE
     Route: 065
  4. HEPARIN [Concomitant]
     Active Substance: HEPARIN SODIUM
     Indication: Anticoagulant therapy
     Dosage: AT THE TIME OF CANNULATION
     Route: 042
  5. HEPARIN [Concomitant]
     Active Substance: HEPARIN SODIUM
     Dosage: INFUSION AT 25 UNITS/KG/H
     Route: 042

REACTIONS (2)
  - Drug ineffective [Unknown]
  - No adverse event [Unknown]
